FAERS Safety Report 4315882-1 (Version None)
Quarter: 2004Q1

REPORT INFORMATION
  Report Type: 
  Country: None (occurrence: None)
  Receive Date: 20040310
  Receipt Date: 20040226
  Transmission Date: 20041129
  Serious: No
  Sender: FDA-Public Use
  Company Number: 2004SE01158

PATIENT
  Age: 39 Year
  Sex: Female
  Weight: 85 kg

DRUGS (1)
  1. ATACAND [Suspect]
     Indication: HYPERTENSION
     Dosage: 16 MG QD PO
     Route: 048
     Dates: start: 20031001, end: 20040212

REACTIONS (2)
  - VOMITING [None]
  - WEIGHT DECREASED [None]
